FAERS Safety Report 7112352-2 (Version None)
Quarter: 2010Q4

REPORT INFORMATION
  Report Type: 
  Country: None (occurrence: None)
  Receive Date: 20101119
  Receipt Date: 20100814
  Transmission Date: 20110411
  Serious: No
  Sender: FDA-Public Use
  Company Number: A0877286A

PATIENT
  Sex: Male

DRUGS (3)
  1. AVODART [Suspect]
     Indication: PROSTATIC DISORDER
     Route: 065
  2. ANTIBIOTICS [Suspect]
     Route: 065
  3. ALLERGY MEDICATION [Concomitant]
     Indication: MULTIPLE ALLERGIES
     Route: 065

REACTIONS (6)
  - ABDOMINAL DISCOMFORT [None]
  - ADVERSE DRUG REACTION [None]
  - DIZZINESS [None]
  - DRUG INTERACTION [None]
  - HEADACHE [None]
  - OROPHARYNGEAL PAIN [None]
